FAERS Safety Report 15296164 (Version 1)
Quarter: 2018Q3

REPORT INFORMATION
  Report Type: Report from Study
  Country: DE (occurrence: DE)
  Receive Date: 20180820
  Receipt Date: 20180820
  Transmission Date: 20181010
  Serious: Yes (Hospitalization, Other)
  Sender: FDA-Public Use
  Company Number: DE-IBIGEN-2018.04704

PATIENT
  Age: 63 Year
  Sex: Male
  Weight: 143.4 kg

DRUGS (8)
  1. UNK [Suspect]
     Active Substance: UNSPECIFIED INGREDIENT
     Indication: SEPSIS
     Dosage: ()
     Route: 042
  2. PLACEBO SOLUTION FOR INJECTION [Suspect]
     Active Substance: UNSPECIFIED INGREDIENT
     Dosage: UNK UNK, WE (1)
     Route: 058
     Dates: start: 20160527
  3. CLINDAMYCIN. [Suspect]
     Active Substance: CLINDAMYCIN
     Indication: SEPSIS
     Dosage: ()
     Route: 042
  4. CIPROFLOXACIN. [Suspect]
     Active Substance: CIPROFLOXACIN
     Indication: SEPSIS
     Route: 048
     Dates: start: 20160525, end: 20160620
  5. PLACEBO SOLUTION FOR INJECTION [Suspect]
     Active Substance: UNSPECIFIED INGREDIENT
     Dosage: UNK UNK, WE (1)
     Route: 058
     Dates: start: 20151214, end: 20160128
  6. PLACEBO SOLUTION FOR INJECTION [Suspect]
     Active Substance: UNSPECIFIED INGREDIENT
     Indication: TYPE 2 DIABETES MELLITUS
     Dosage: UNK UNK, WE (1)
     Route: 058
     Dates: start: 20150806, end: 20151119
  7. PLACEBO SOLUTION FOR INJECTION [Suspect]
     Active Substance: UNSPECIFIED INGREDIENT
     Dosage: UNK UNK, WE (1)
     Route: 058
     Dates: start: 20160210, end: 20160505
  8. HYDROMORPHON [Suspect]
     Active Substance: HYDROMORPHONE
     Indication: ERYSIPELAS
     Route: 048
     Dates: start: 20160512, end: 20160527

REACTIONS (1)
  - Erysipelas [Recovered/Resolved]

NARRATIVE: CASE EVENT DATE: 20160512
